FAERS Safety Report 19822884 (Version 1)
Quarter: 2021Q3

REPORT INFORMATION
  Report Type: Spontaneous
  Country: NO (occurrence: NO)
  Receive Date: 20210913
  Receipt Date: 20210913
  Transmission Date: 20211014
  Serious: Yes (Life-Threatening, Hospitalization, Other)
  Sender: FDA-Public Use
  Company Number: NO-PFIZER INC-202101179228

PATIENT
  Age: 28 Year
  Sex: Female

DRUGS (1)
  1. EFEXOR DEPOT [Suspect]
     Active Substance: VENLAFAXINE HYDROCHLORIDE
     Dosage: 150 MG, 1X/DAY
     Route: 048
     Dates: start: 202101, end: 202106

REACTIONS (5)
  - Suicidal ideation [Unknown]
  - Impulse-control disorder [Unknown]
  - Suicide attempt [Unknown]
  - Suicidal behaviour [Recovered/Resolved with Sequelae]
  - Intentional self-injury [Unknown]

NARRATIVE: CASE EVENT DATE: 202104
